FAERS Safety Report 5883466-X (Version None)
Quarter: 2008Q3

REPORT INFORMATION
  Report Type: 
  Country: None (occurrence: None)
  Receive Date: 20080915
  Receipt Date: 20080905
  Transmission Date: 20090109
  Serious: Yes (Hospitalization)
  Sender: FDA-Public Use
  Company Number: US-ROCHE-584719

PATIENT
  Age: 69 Year
  Sex: Female

DRUGS (2)
  1. BONIVA [Suspect]
     Indication: OSTEOPOROSIS
     Route: 065
  2. UNSPECIFIED DRUGS [Concomitant]
     Dosage: DRUG REPORTED AS MS MEDS

REACTIONS (1)
  - BLOOD SODIUM DECREASED [None]
